FAERS Safety Report 7248013-9 (Version None)
Quarter: 2011Q1

REPORT INFORMATION
  Report Type: 
  Country: None (occurrence: None)
  Receive Date: 20110127
  Receipt Date: 20110120
  Transmission Date: 20110831
  Serious: Yes (Other)
  Sender: FDA-Public Use
  Company Number: US-PFIZER INC-2011010168

PATIENT
  Sex: Male

DRUGS (7)
  1. ASPIRIN [Concomitant]
     Indication: ANTICOAGULANT THERAPY
     Dosage: 81 MG, 1X/DAY
  2. LISINOPRIL [Interacting]
     Indication: HYPERTENSION
     Dosage: 20 MG, 1X/DAY
     Dates: start: 20080101
  3. DETROL [Suspect]
     Indication: PAIN
     Dosage: 4 MG, 1X/DAY
     Route: 048
     Dates: start: 20110111
  4. MECLIZINE [Interacting]
     Indication: DIZZINESS
     Dosage: 25 MG, 1X/DAY
     Dates: start: 20080101
  5. ARICEPT [Interacting]
     Dosage: 10 MG, 1X/DAY
     Route: 048
     Dates: start: 20080101
  6. LIPITOR [Interacting]
     Indication: BLOOD CHOLESTEROL INCREASED
     Dosage: 20 MG, 1X/DAY
     Route: 048
     Dates: start: 20080101
  7. ARICEPT [Interacting]
     Indication: DEMENTIA
     Dosage: 5 MG, 1X/DAY
     Route: 048
     Dates: start: 20080101

REACTIONS (3)
  - DRUG INTERACTION [None]
  - ABNORMAL BEHAVIOUR [None]
  - HALLUCINATION [None]
